FAERS Safety Report 8790850 (Version 2)
Quarter: 2013Q1

REPORT INFORMATION
  Report Type: Spontaneous
  Country: US (occurrence: None)
  Receive Date: 20120906
  Receipt Date: 20121113
  Transmission Date: 20140127
  Serious: Yes (Other)
  Sender: FDA-Public Use
  Company Number: 2012HGS-003546

PATIENT
  Age: 39 Year
  Sex: Female
  Weight: 72.58 kg

DRUGS (13)
  1. BENLYSTA [Suspect]
     Indication: SYSTEMIC LUPUS ERYTHEMATOSUS
     Dosage: 1 IN 28 D
     Route: 041
     Dates: start: 20120413
  2. PREDNISONE (PREDNISONE) (PREDNISONE) [Concomitant]
  3. PLAQUENIL (HYDROXYCHLOROQUINE SULFATE) (HYDROXYCHLOROQUINE SULFATE) [Concomitant]
  4. IMURAN (AZATHIOPRINE) (AZATHIOPRINE) [Concomitant]
  5. LIPITOR (ATORVASTATIN CALCIUM) (ATORVASTATIN CALCIUM) [Concomitant]
  6. LABETALOL (LABETALOL) (LABETALOL) [Concomitant]
  7. LISINOPRIL (LISINOPRIL) (LISINOPRIL) [Concomitant]
  8. CLONIDINE (CLONIDINE) (CLONIDINE) [Concomitant]
  9. FOLIC ACID (FOLIC ACID) (FOLIC ACID) [Concomitant]
  10. CALCIUM (CALCIUM) (CALCIUM) [Concomitant]
  11. DOMPEREDON (DOMPERIDONE) (DOMPERIDONE) [Concomitant]
  12. LEXAPRO (ESCITALOPRAM OXALATE) (ESCITALOPRAM OXALATE) [Concomitant]
  13. CALCITROL (CALCITROL /00508501/) (ERGOCALCIFEROL, RETINOL, CALCIUM CARBONATE) [Concomitant]

REACTIONS (2)
  - Systemic lupus erythematosus [None]
  - Drug ineffective [None]
